FAERS Safety Report 5144893-1 (Version None)
Quarter: 2006Q4

REPORT INFORMATION
  Report Type: 
  Country: None (occurrence: None)
  Receive Date: 20061107
  Receipt Date: 20061101
  Transmission Date: 20070319
  Serious: Yes (Hospitalization)
  Sender: FDA-Public Use
  Company Number: US-JNJFOC-20061002717

PATIENT
  Sex: Female
  Weight: 98.4 kg

DRUGS (5)
  1. INFLIXIMAB [Suspect]
     Route: 042
  2. INFLIXIMAB [Suspect]
     Indication: CROHN'S DISEASE
     Route: 042
  3. 5-ASA [Concomitant]
     Route: 048
  4. 6MP [Concomitant]
  5. FLUOXETINE [Concomitant]

REACTIONS (3)
  - CROHN'S DISEASE [None]
  - DEPRESSION [None]
  - PSYCHOTIC DISORDER [None]
